FAERS Safety Report 4400085-2 (Version None)
Quarter: 2004Q3

REPORT INFORMATION
  Report Type: 
  Country: None (occurrence: None)
  Receive Date: 20040714
  Receipt Date: 20040701
  Transmission Date: 20050211
  Serious: Yes (Life-Threatening, Hospitalization)
  Sender: FDA-Public Use
  Company Number: 2004222134DE

PATIENT
  Age: 84 Year
  Sex: Female
  Weight: 69 kg

DRUGS (9)
  1. CELEBREX [Suspect]
     Indication: ARTHRALGIA
     Dosage: 200 MG, QD, ORAL
     Route: 048
     Dates: start: 20030101, end: 20040512
  2. ARICEPT [Suspect]
     Indication: DEMENTIA
     Dosage: 5 MG, QD, ORAL
     Route: 048
     Dates: start: 20030101, end: 20040510
  3. ASPIRIN [Suspect]
     Indication: CORONARY ARTERY DISEASE
     Dosage: 100 MG, QD, ORAL
     Route: 048
     Dates: end: 20040510
  4. ACTRAPHANE HM (INSULIN HUMAN INJECTION, ISOPHANE) [Concomitant]
  5. AQUAPHOR ((XIPAMIDE) [Concomitant]
  6. DIGITOXIN TAB [Concomitant]
  7. LORZAAR PLUS [Concomitant]
  8. RISPERDAL [Concomitant]
  9. SOTALOL HCL [Concomitant]

REACTIONS (6)
  - ANAEMIA [None]
  - ASTHENIA [None]
  - BACK PAIN [None]
  - DRUG INTERACTION POTENTIATION [None]
  - FATIGUE [None]
  - GASTRIC ULCER HAEMORRHAGE [None]
